FAERS Safety Report 11030322 (Version 1)
Quarter: 2015Q2

REPORT INFORMATION
  Report Type: Spontaneous
  Country: US (occurrence: None)
  Receive Date: 20150413
  Receipt Date: 20150413
  Transmission Date: 20150821
  Serious: Yes (Hospitalization, Disabling, Other)
  Sender: FDA-Public Use
  Company Number: MAC-15-035

PATIENT
  Sex: Female

DRUGS (1)
  1. MISOPROSTOL. [Suspect]
     Active Substance: MISOPROSTOL
     Indication: LABOUR INDUCTION
     Dates: start: 20140201

REACTIONS (10)
  - Asthenia [None]
  - Emotional distress [None]
  - Multi-organ failure [None]
  - Pain [None]
  - Uterine spasm [None]
  - Haemorrhage [None]
  - Decreased activity [None]
  - Injury [None]
  - Hypotonia [None]
  - Mental disorder [None]

NARRATIVE: CASE EVENT DATE: 20140202
